FAERS Safety Report 25762639 (Version 1)
Quarter: 2025Q3

REPORT INFORMATION
  Report Type: Spontaneous
  Country: EU (occurrence: EU)
  Receive Date: 20250904
  Receipt Date: 20250904
  Transmission Date: 20251020
  Serious: Yes (Other)
  Sender: NOVARTIS
  Company Number: EU-002147023-NVSC2025DE137669

PATIENT
  Sex: Female

DRUGS (3)
  1. EVEROLIMUS [Suspect]
     Active Substance: EVEROLIMUS
     Indication: Tuberous sclerosis complex
     Route: 065
     Dates: start: 201609
  2. EVEROLIMUS [Suspect]
     Active Substance: EVEROLIMUS
     Indication: Astrocytoma, low grade
     Route: 065
     Dates: start: 202507
  3. EVEROLIMUS [Suspect]
     Active Substance: EVEROLIMUS
     Indication: Renal perivascular epithelioid cell tumour

REACTIONS (1)
  - Pneumothorax [Unknown]
